FAERS Safety Report 8401159-1 (Version None)
Quarter: 2012Q2

REPORT INFORMATION
  Report Type: 
  Country: None (occurrence: None)
  Receive Date: 20120525
  Receipt Date: 20120509
  Transmission Date: 20120825
  Serious: Yes (Other)
  Sender: FDA-Public Use
  Company Number: DKLU1080489

PATIENT
  Sex: Female

DRUGS (2)
  1. ANTIFUNGAL (TOLANFTATE) [Concomitant]
  2. NEOPROFEN [Suspect]
     Indication: PATENT DUCTUS ARTERIOSUS

REACTIONS (2)
  - DEVELOPMENTAL DELAY [None]
  - RETINOPATHY OF PREMATURITY [None]
